FAERS Safety Report 14848096 (Version 2)
Quarter: 2018Q2

REPORT INFORMATION
  Report Type: Spontaneous
  Country: DE (occurrence: DE)
  Receive Date: 20180504
  Receipt Date: 20180620
  Transmission Date: 20180711
  Serious: Yes (Hospitalization, Other)
  Sender: FDA-Public Use
  Company Number: DE-FERRINGPH-2018FE02200

PATIENT

DRUGS (3)
  1. PERGOVERIS [Suspect]
     Active Substance: FOLLITROPIN\LUTROPIN ALFA
     Dosage: 300 IU, DAILY
  2. BREVACTID [Suspect]
     Active Substance: GONADOTROPHIN, CHORIONIC
     Indication: OVULATION INDUCTION
     Dosage: 5000 IU ONCE/SINGLE
     Route: 065
     Dates: start: 20180318, end: 20180318
  3. CETROTIDE [Suspect]
     Active Substance: CETRORELIX ACETATE
     Dosage: 0.25 MG, DAILY

REACTIONS (1)
  - Ovarian haemorrhage [Recovered/Resolved]

NARRATIVE: CASE EVENT DATE: 20180319
